FAERS Safety Report 5154805-2 (Version None)
Quarter: 2006Q4

REPORT INFORMATION
  Report Type: 
  Country: None (occurrence: None)
  Receive Date: 20061121
  Receipt Date: 20061030
  Transmission Date: 20070319
  Serious: Yes (Other)
  Sender: FDA-Public Use
  Company Number: US-JNJFOC-20061104488

PATIENT
  Sex: Male
  Weight: 91.63 kg

DRUGS (7)
  1. REMICADE [Suspect]
  2. REMICADE [Suspect]
  3. REMICADE [Suspect]
  4. REMICADE [Suspect]
  5. REMICADE [Suspect]
     Indication: CROHN'S DISEASE
  6. PREDNISONE TAB [Suspect]
     Indication: CROHN'S DISEASE
  7. MERCAPTOPURINE [Suspect]
     Indication: CROHN'S DISEASE

REACTIONS (3)
  - INFUSION RELATED REACTION [None]
  - LARYNGOSPASM [None]
  - RASH [None]
